FAERS Safety Report 25130532 (Version 1)
Quarter: 2025Q1

REPORT INFORMATION
  Report Type: Spontaneous
  Country: CA (occurrence: CA)
  Receive Date: 20250327
  Receipt Date: 20250327
  Transmission Date: 20250408
  Serious: Yes (Life-Threatening, Hospitalization)
  Sender: Haleon PLC
  Company Number: CA-SANDOZ-SDZ2023CA034251

PATIENT
  Age: 30 Year
  Sex: Male

DRUGS (73)
  1. VOLTAREN [Suspect]
     Active Substance: DICLOFENAC SODIUM
     Indication: Neuralgia
     Route: 065
  2. DILAUDID [Suspect]
     Active Substance: HYDROMORPHONE HYDROCHLORIDE
     Indication: Neuralgia
     Dosage: 7 MG, QD (7.0 MG 1 EVERY 1 DAYS)
     Route: 065
  3. DILAUDID [Suspect]
     Active Substance: HYDROMORPHONE HYDROCHLORIDE
     Dosage: 30 MG, QD (30.0 MG 1 EVERY 1 DAYS)
     Route: 065
  4. DICLOFENAC SODIUM [Suspect]
     Active Substance: DICLOFENAC SODIUM
     Indication: Neuralgia
     Route: 065
  5. ADVIL [Suspect]
     Active Substance: IBUPROFEN
     Indication: Neuralgia
     Dosage: 1600.0 MILLIGRAM 1 EVERY 1 DAYS
     Route: 065
  6. ADVIL [Suspect]
     Active Substance: IBUPROFEN
     Route: 042
  7. NABILONE [Suspect]
     Active Substance: NABILONE
     Indication: Product used for unknown indication
     Route: 050
  8. NABILONE [Suspect]
     Active Substance: NABILONE
     Indication: Neuralgia
     Dosage: 6 MG, QD (6.0 MG 1 EVERY 1 DAYS)
     Route: 065
  9. NABILONE [Suspect]
     Active Substance: NABILONE
     Dosage: 2 MG, QD (2.0 MG 1 EVERY 1 DAYS)
     Route: 065
  10. NABILONE [Suspect]
     Active Substance: NABILONE
     Route: 065
  11. NABILONE [Suspect]
     Active Substance: NABILONE
     Route: 065
  12. LIDOCAINE HYDROCHLORIDE [Suspect]
     Active Substance: LIDOCAINE HYDROCHLORIDE
     Indication: Neuralgia
     Route: 042
  13. LIDOCAINE HYDROCHLORIDE [Suspect]
     Active Substance: LIDOCAINE HYDROCHLORIDE
     Route: 065
  14. ACETAMINOPHEN [Suspect]
     Active Substance: ACETAMINOPHEN
     Indication: Neuralgia
     Dosage: 3900 MG, QD (3900.0 MG 1 EVERY 1 DAYS)?MODIFIED-RELEASE FILM-COATED TABLET
     Route: 065
  15. ACETAMINOPHEN [Suspect]
     Active Substance: ACETAMINOPHEN
     Indication: Product used for unknown indication
     Dosage: 2600 MG, QD (2600.0 MG 1 EVERY 1 DAYS)?MODIFIED-RELEASE FILM-COATED TABLET
     Route: 065
  16. ACETAMINOPHEN [Suspect]
     Active Substance: ACETAMINOPHEN
     Route: 065
  17. ACETAMINOPHEN [Suspect]
     Active Substance: ACETAMINOPHEN
     Route: 065
  18. VENLAFAXINE HYDROCHLORIDE [Suspect]
     Active Substance: VENLAFAXINE HYDROCHLORIDE
     Indication: Neuralgia
     Route: 065
  19. VENLAFAXINE HYDROCHLORIDE [Suspect]
     Active Substance: VENLAFAXINE HYDROCHLORIDE
     Route: 065
  20. PHENYTOIN [Suspect]
     Active Substance: PHENYTOIN
     Indication: Neuralgia
     Dosage: 1500 MG, QD
     Route: 065
  21. PHENYTOIN [Suspect]
     Active Substance: PHENYTOIN
     Route: 065
  22. PHENYTOIN [Suspect]
     Active Substance: PHENYTOIN
     Route: 065
  23. FENTANYL [Suspect]
     Active Substance: FENTANYL
     Indication: Neuralgia
     Dosage: 37.5 MG (37.5 MG (1 EVERY 1 HOURS))
     Route: 065
  24. FENTANYL [Suspect]
     Active Substance: FENTANYL
     Indication: Product used for unknown indication
     Dosage: 25 MG (25 MG (1 EVERY 1 HOURS))
     Route: 065
  25. FENTANYL [Suspect]
     Active Substance: FENTANYL
     Route: 062
  26. FENTANYL [Suspect]
     Active Substance: FENTANYL
     Route: 062
  27. FENTANYL [Suspect]
     Active Substance: FENTANYL
     Route: 065
  28. GABAPENTIN [Suspect]
     Active Substance: GABAPENTIN
     Indication: Neuralgia
     Route: 048
  29. GABAPENTIN [Suspect]
     Active Substance: GABAPENTIN
     Indication: Product used for unknown indication
     Dosage: 3600 MG, QD
     Route: 048
  30. GABAPENTIN [Suspect]
     Active Substance: GABAPENTIN
     Dosage: 900 MG, QD
     Route: 048
  31. GABAPENTIN [Suspect]
     Active Substance: GABAPENTIN
     Dosage: 300 MG, QD
     Route: 048
  32. GABAPENTIN [Suspect]
     Active Substance: GABAPENTIN
     Dosage: 1800 MG, QD
     Route: 048
  33. GABAPENTIN [Suspect]
     Active Substance: GABAPENTIN
     Dosage: 1200 MG, QD
     Route: 048
  34. GABAPENTIN [Suspect]
     Active Substance: GABAPENTIN
     Route: 048
  35. GABAPENTIN [Suspect]
     Active Substance: GABAPENTIN
     Route: 065
  36. GABAPENTIN [Suspect]
     Active Substance: GABAPENTIN
     Route: 065
  37. GABAPENTIN [Suspect]
     Active Substance: GABAPENTIN
     Route: 065
  38. GABAPENTIN [Suspect]
     Active Substance: GABAPENTIN
     Route: 065
  39. GABAPENTIN [Suspect]
     Active Substance: GABAPENTIN
     Route: 065
  40. GABAPENTIN [Suspect]
     Active Substance: GABAPENTIN
     Route: 065
  41. GABAPENTIN [Suspect]
     Active Substance: GABAPENTIN
     Route: 065
  42. GABAPENTIN [Suspect]
     Active Substance: GABAPENTIN
     Route: 065
  43. OLANZAPINE [Suspect]
     Active Substance: OLANZAPINE
     Indication: Product used for unknown indication
     Dosage: 3 MG, QD
     Route: 065
  44. OLANZAPINE [Suspect]
     Active Substance: OLANZAPINE
     Indication: Neuralgia
     Dosage: 2.5 MG, QD
     Route: 065
  45. OLANZAPINE [Suspect]
     Active Substance: OLANZAPINE
     Route: 065
  46. OLANZAPINE [Suspect]
     Active Substance: OLANZAPINE
     Route: 065
  47. OLANZAPINE [Suspect]
     Active Substance: OLANZAPINE
     Dosage: UNK
     Route: 065
  48. OLANZAPINE [Suspect]
     Active Substance: OLANZAPINE
     Dosage: UNK
     Route: 065
  49. OLANZAPINE [Suspect]
     Active Substance: OLANZAPINE
     Dosage: UNK
     Route: 065
  50. OLANZAPINE [Suspect]
     Active Substance: OLANZAPINE
     Dosage: UNK
     Route: 065
  51. OLANZAPINE [Suspect]
     Active Substance: OLANZAPINE
     Route: 065
  52. OLANZAPINE [Suspect]
     Active Substance: OLANZAPINE
     Route: 065
  53. HYDROMORPHONE HYDROCHLORIDE [Suspect]
     Active Substance: HYDROMORPHONE HYDROCHLORIDE
     Indication: Neuralgia
     Route: 042
  54. HYDROMORPHONE HYDROCHLORIDE [Suspect]
     Active Substance: HYDROMORPHONE HYDROCHLORIDE
     Indication: Product used for unknown indication
     Route: 030
  55. HYDROMORPHONE HYDROCHLORIDE [Suspect]
     Active Substance: HYDROMORPHONE HYDROCHLORIDE
     Route: 030
  56. HYDROMORPHONE HYDROCHLORIDE [Suspect]
     Active Substance: HYDROMORPHONE HYDROCHLORIDE
     Route: 065
  57. HYDROMORPHONE HYDROCHLORIDE [Suspect]
     Active Substance: HYDROMORPHONE HYDROCHLORIDE
     Route: 065
  58. HYDROMORPHONE HYDROCHLORIDE [Suspect]
     Active Substance: HYDROMORPHONE HYDROCHLORIDE
     Route: 065
  59. HUMAN IMMUNOGLOBULIN G [Suspect]
     Active Substance: HUMAN IMMUNOGLOBULIN G
     Indication: Guillain-Barre syndrome
     Route: 042
  60. ZOPICLONE [Suspect]
     Active Substance: ZOPICLONE
     Indication: Neuralgia
     Route: 065
  61. ZOPICLONE [Suspect]
     Active Substance: ZOPICLONE
     Route: 065
  62. KETAMINE [Suspect]
     Active Substance: KETAMINE
     Indication: Neuralgia
     Dosage: 30 MG, QD
     Route: 042
  63. KETAMINE [Suspect]
     Active Substance: KETAMINE
     Indication: Product used for unknown indication
     Dosage: 40 MG, QD
     Route: 048
  64. KETAMINE [Suspect]
     Active Substance: KETAMINE
     Route: 042
  65. KETAMINE [Suspect]
     Active Substance: KETAMINE
     Route: 048
  66. KETAMINE [Suspect]
     Active Substance: KETAMINE
     Route: 048
  67. KETAMINE [Suspect]
     Active Substance: KETAMINE
     Route: 042
  68. HYDROMORPHONE [Suspect]
     Active Substance: HYDROMORPHONE
     Indication: Neuralgia
     Route: 048
  69. FENTANYL [Suspect]
     Active Substance: FENTANYL
     Indication: Neuralgia
     Route: 065
  70. LIDOCAINE [Suspect]
     Active Substance: LIDOCAINE
     Indication: Neuralgia
     Route: 061
  71. ACETAMINOPHEN [Suspect]
     Active Substance: ACETAMINOPHEN
     Indication: Neuralgia
     Route: 062
  72. ACETAMINOPHEN [Suspect]
     Active Substance: ACETAMINOPHEN
     Route: 062
  73. ACETAMINOPHEN [Suspect]
     Active Substance: ACETAMINOPHEN
     Dosage: 3900.0 MILLIGRAM 1 EVERY 1 DAYS
     Route: 065

REACTIONS (4)
  - Inspiratory capacity decreased [Unknown]
  - Off label use [Unknown]
  - Drug ineffective for unapproved indication [Unknown]
  - Drug ineffective [Unknown]
